FAERS Safety Report 16859223 (Version 1)
Quarter: 2019Q3

REPORT INFORMATION
  Report Type: Report from Study
  Country: None (occurrence: US)
  Receive Date: 20190926
  Receipt Date: 20190926
  Transmission Date: 20191005
  Serious: Yes (Other)
  Sender: FDA-Public Use
  Company Number: US-ABBVIE-19K-163-2933526-00

PATIENT
  Sex: Female

DRUGS (1)
  1. HUMIRA [Suspect]
     Active Substance: ADALIMUMAB
     Indication: PSORIASIS
     Route: 058

REACTIONS (8)
  - Feeling abnormal [Unknown]
  - Amnesia [Not Recovered/Not Resolved]
  - Retching [Unknown]
  - Nausea [Not Recovered/Not Resolved]
  - Seizure [Not Recovered/Not Resolved]
  - Psoriasis [Not Recovered/Not Resolved]
  - Epilepsy [Not Recovered/Not Resolved]
  - Migraine [Not Recovered/Not Resolved]
